FAERS Safety Report 5002140-5 (Version None)
Quarter: 2006Q2

REPORT INFORMATION
  Report Type: 
  Country: None (occurrence: None)
  Receive Date: 20060515
  Receipt Date: 20060501
  Transmission Date: 20061013
  Serious: Yes (Hospitalization)
  Sender: FDA-Public Use
  Company Number: DEWYE594202MAY06

PATIENT
  Sex: Female
  Weight: 50 kg

DRUGS (4)
  1. ENBREL [Suspect]
     Indication: JUVENILE ARTHRITIS
     Dosage: UNKNOWN
     Route: 058
     Dates: start: 20050801
  2. ENBREL [Suspect]
     Route: 058
  3. LANTAREL [Concomitant]
     Indication: JUVENILE ARTHRITIS
     Route: 048
  4. NAPROXEN [Concomitant]
     Indication: JUVENILE ARTHRITIS
     Route: 048

REACTIONS (1)
  - HAEMORRHAGIC OVARIAN CYST [None]
